FAERS Safety Report 7579233-1 (Version None)
Quarter: 2011Q2

REPORT INFORMATION
  Report Type: 
  Country: None (occurrence: None)
  Receive Date: 20110628
  Receipt Date: 20110623
  Transmission Date: 20111010
  Serious: Yes (Death, Hospitalization)
  Sender: FDA-Public Use
  Company Number: PHHY2011US56071

PATIENT
  Age: 53 Year
  Sex: Male

DRUGS (3)
  1. ASPIRIN [Concomitant]
     Dosage: 81 MG, UNK
  2. GLEEVEC [Suspect]
     Indication: CHRONIC MYELOID LEUKAEMIA
     Dosage: 600 MG, UNK
  3. HYDROXYUREA [Suspect]
     Dosage: 500 MG, UNK
     Dates: start: 20110513

REACTIONS (5)
  - CONTUSION [None]
  - HYPERTENSION [None]
  - CEREBRAL HAEMORRHAGE [None]
  - HEADACHE [None]
  - WEIGHT DECREASED [None]
